FAERS Safety Report 6490371-7 (Version None)
Quarter: 2009Q4

REPORT INFORMATION
  Report Type: 
  Country: None (occurrence: None)
  Receive Date: 20091211
  Receipt Date: 20091127
  Transmission Date: 20100525
  Serious: No
  Sender: FDA-Public Use
  Company Number: B0605856A

PATIENT
  Age: 2 Month

DRUGS (1)
  1. RELENZA [Suspect]
     Indication: INFLUENZA
     Dosage: 20MG TWICE PER DAY
     Dates: start: 20091116, end: 20091120

REACTIONS (1)
  - DRUG EXPOSURE VIA BREAST MILK [None]
